FAERS Safety Report 8340153-6 (Version None)
Quarter: 2012Q2

REPORT INFORMATION
  Report Type: 
  Country: None (occurrence: None)
  Receive Date: 20120507
  Receipt Date: 20120208
  Transmission Date: 20120825
  Serious: No
  Sender: FDA-Public Use
  Company Number: US-ASTRAZENECA-2011SE74627

PATIENT
  Age: 70 Year
  Sex: Female
  Weight: 89.8 kg

DRUGS (4)
  1. LIPITOR [Concomitant]
     Indication: BLOOD CHOLESTEROL INCREASED
  2. VIMOVO [Suspect]
     Indication: OSTEOARTHRITIS
     Dosage: 500 MG/ 20MG, TWO TIMES A DAY
     Route: 048
  3. VIMOVO [Suspect]
     Route: 048
     Dates: end: 20120101
  4. LISINOPRIL [Concomitant]
     Indication: BLOOD PRESSURE ABNORMAL

REACTIONS (6)
  - DRUG DOSE OMISSION [None]
  - DRUG PRESCRIBING ERROR [None]
  - LIMB DISCOMFORT [None]
  - PAIN IN EXTREMITY [None]
  - DRUG INEFFECTIVE [None]
  - DRUG EFFECT DECREASED [None]
